FAERS Safety Report 10584853 (Version 2)
Quarter: 2014Q4

REPORT INFORMATION
  Report Type: Spontaneous
  Country: PE (occurrence: PE)
  Receive Date: 20141114
  Receipt Date: 20141114
  Transmission Date: 20150529
  Serious: Yes (Death)
  Sender: FDA-Public Use
  Company Number: PE-BRISTOL-MYERS SQUIBB COMPANY-21408489

PATIENT
  Age: 74 Year
  Sex: Male

DRUGS (1)
  1. YERVOY [Suspect]
     Active Substance: IPILIMUMAB
     Indication: METASTATIC MALIGNANT MELANOMA
     Dosage: 1 DF= 3AMPS/CYCLE?150 MG
     Dates: start: 2014

REACTIONS (3)
  - Malignant neoplasm progression [Fatal]
  - Hypothyroidism [Unknown]
  - Lung disorder [Fatal]

NARRATIVE: CASE EVENT DATE: 20140909
